FAERS Safety Report 7491994-9 (Version None)
Quarter: 2011Q2

REPORT INFORMATION
  Report Type: 
  Country: None (occurrence: None)
  Receive Date: 20110519
  Receipt Date: 20110516
  Transmission Date: 20111010
  Serious: Yes (Other)
  Sender: FDA-Public Use
  Company Number: US-PFIZER INC-2011095404

PATIENT
  Sex: Female
  Weight: 65 kg

DRUGS (7)
  1. METFORMIN [Concomitant]
     Indication: TYPE 2 DIABETES MELLITUS
     Dosage: 500 MG, 2X/DAY
  2. CLONAZEPAM [Concomitant]
     Dosage: 1 MG, 3X/DAY
  3. TOVIAZ [Concomitant]
     Indication: HYPERTONIC BLADDER
     Dosage: UNK, DAILY
  4. TRAZODONE [Concomitant]
     Dosage: 100 MG, DAILY
  5. CHANTIX [Suspect]
     Dosage: 1 MG, 2X/DAY
     Dates: start: 20110101, end: 20110510
  6. CHANTIX [Suspect]
     Indication: SMOKING CESSATION THERAPY
     Dosage: 0.5 MG, 1X/DAY
     Route: 048
     Dates: start: 20110412, end: 20110101
  7. ZOLOFT [Concomitant]
     Indication: DEPRESSION
     Dosage: 150 MG, DAILY

REACTIONS (7)
  - HOSTILITY [None]
  - AGITATION [None]
  - DEPRESSION [None]
  - IRRITABILITY [None]
  - ABNORMAL BEHAVIOUR [None]
  - SUICIDAL IDEATION [None]
  - PHYSICAL ASSAULT [None]
